FAERS Safety Report 6074868-X (Version None)
Quarter: 2009Q1

REPORT INFORMATION
  Report Type: 
  Country: None (occurrence: None)
  Receive Date: 20090212
  Receipt Date: 20090202
  Transmission Date: 20090719
  Serious: Yes (Hospitalization)
  Sender: FDA-Public Use
  Company Number: DE-BAXTER-2009BH001950

PATIENT
  Age: 46 Year
  Sex: Female
  Weight: 66 kg

DRUGS (10)
  1. CYCLOPHOSPHAMIDE [Suspect]
     Indication: BREAST CANCER
     Route: 042
     Dates: start: 20061207, end: 20070118
  2. EPIRUBICIN [Suspect]
     Indication: BREAST CANCER
     Route: 042
     Dates: start: 20061207, end: 20070118
  3. PACLITAXEL [Suspect]
     Indication: BREAST CANCER
     Route: 042
     Dates: start: 20070215, end: 20070215
  4. PACLITAXEL [Suspect]
     Route: 042
     Dates: start: 20070201, end: 20070201
  5. CAPECITABINE [Suspect]
     Indication: BREAST CANCER
     Route: 048
     Dates: start: 20070201, end: 20070206
  6. DEXAMETHASONE TAB [Concomitant]
     Route: 042
     Dates: start: 20070215, end: 20070215
  7. KEVATRIL [Concomitant]
     Route: 042
     Dates: start: 20070215, end: 20070215
  8. FENISTIL [Concomitant]
     Route: 042
     Dates: start: 20070215, end: 20070215
  9. RANITIDINE [Concomitant]
     Route: 042
     Dates: start: 20070215, end: 20070215
  10. EPOETIN NOS [Concomitant]
     Route: 058
     Dates: start: 20070215, end: 20070215

REACTIONS (4)
  - ANAEMIA [None]
  - CANDIDIASIS [None]
  - GENERAL PHYSICAL HEALTH DETERIORATION [None]
  - SKIN TOXICITY [None]
